FAERS Safety Report 12217784 (Version 1)
Quarter: 2016Q1

REPORT INFORMATION
  Report Type: Spontaneous
  Country: US (occurrence: US)
  Receive Date: 20160329
  Receipt Date: 20160329
  Transmission Date: 20160526
  Serious: Yes (Other)
  Sender: FDA-Public Use
  Company Number: US-MDT-ADR-2016-00271

PATIENT
  Age: 38 Year
  Sex: Female

DRUGS (1)
  1. LIORESAL [Suspect]
     Active Substance: BACLOFEN
     Dosage: 149 MCG/DAY
     Route: 037

REACTIONS (6)
  - Overdose [None]
  - Muscle spasticity [None]
  - Psychotic disorder [None]
  - Device breakage [None]
  - Dysgeusia [None]
  - Device difficult to use [None]
